FAERS Safety Report 4357116-8 (Version None)
Quarter: 2004Q2

REPORT INFORMATION
  Report Type: 
  Country: None (occurrence: None)
  Receive Date: 20040511
  Receipt Date: 20040421
  Transmission Date: 20050107
  Serious: Yes (Other)
  Sender: FDA-Public Use
  Company Number: FR_040403982

PATIENT
  Age: 70 Year
  Sex: Female

DRUGS (4)
  1. EVISTA [Suspect]
     Indication: OSTEOPOROSIS
     Dosage: 60 MG / 1 DAY
     Dates: start: 20030901, end: 20040421
  2. DI-ANTALVIC [Concomitant]
  3. PIASCLEDINE [Concomitant]
  4. VASTAREL (TRIMETAZIDINE HYDROCHLORIDE) [Concomitant]

REACTIONS (1)
  - THROMBOCYTHAEMIA [None]
